FAERS Safety Report 22000537 (Version 1)
Quarter: 2023Q1

REPORT INFORMATION
  Report Type: Spontaneous
  Country: US (occurrence: None)
  Receive Date: 20230215
  Receipt Date: 20230215
  Transmission Date: 20230418
  Serious: No
  Sender: FDA-Public Use
  Company Number: None

PATIENT
  Age: 52 Year
  Sex: Female
  Weight: 102.6 kg

DRUGS (1)
  1. OZEMPIC [Suspect]
     Active Substance: SEMAGLUTIDE
     Indication: Weight decreased
     Dosage: OTHER QUANTITY : 0.25 INJECTION(S);?FREQUENCY : WEEKLY;?OTHER ROUTE : INTO THE FAT OF THE STOMACH122
     Route: 050
     Dates: start: 20221220, end: 20221220

REACTIONS (6)
  - Vomiting [None]
  - Abdominal pain upper [None]
  - Abdominal distension [None]
  - Nausea [None]
  - Dyspepsia [None]
  - Loss of personal independence in daily activities [None]

NARRATIVE: CASE EVENT DATE: 20221220
